FAERS Safety Report 4394037-9 (Version None)
Quarter: 2004Q3

REPORT INFORMATION
  Report Type: 
  Country: None (occurrence: None)
  Receive Date: 20040707
  Receipt Date: 20040630
  Transmission Date: 20050211
  Serious: Yes (Other)
  Sender: FDA-Public Use
  Company Number: 04-06-0931

PATIENT
  Sex: Female

DRUGS (5)
  1. METRONIDAZOLE [Suspect]
  2. PAROXETINE HCL [Suspect]
     Dosage: ORAL
     Route: 048
  3. LORATADINE [Suspect]
     Dosage: ORAL
     Route: 048
  4. CIMETIDINE [Suspect]
  5. ACETAMINOPHEN [Suspect]

REACTIONS (5)
  - ABORTION SPONTANEOUS [None]
  - ALCOHOL USE [None]
  - DRUG EXPOSURE DURING PREGNANCY [None]
  - MULTIPLE DRUG OVERDOSE [None]
  - PREGNANCY [None]
